FAERS Safety Report 12323797 (Version 1)
Quarter: 2016Q2

REPORT INFORMATION
  Report Type: Spontaneous
  Country: US (occurrence: US)
  Receive Date: 20160502
  Receipt Date: 20160502
  Transmission Date: 20160815
  Serious: Yes (Other)
  Sender: FDA-Public Use
  Company Number: US-AMGEN-USASP2016053113

PATIENT
  Sex: Female

DRUGS (4)
  1. METHOTREXATE [Concomitant]
     Active Substance: METHOTREXATE
     Indication: IMMUNE SYSTEM DISORDER
  2. PROLIA [Suspect]
     Active Substance: DENOSUMAB
     Indication: BONE DENSITY ABNORMAL
     Dosage: 60 MG, UNK
     Route: 065
     Dates: start: 20151009
  3. LEFLUNOMIDE. [Concomitant]
     Active Substance: LEFLUNOMIDE
     Indication: IMMUNE SYSTEM DISORDER
  4. PREDNISONE. [Concomitant]
     Active Substance: PREDNISONE
     Indication: IMMUNE SYSTEM DISORDER

REACTIONS (4)
  - Activities of daily living impaired [Unknown]
  - Stress fracture [Unknown]
  - Impaired driving ability [Unknown]
  - Rheumatoid arthritis [Unknown]
